FAERS Safety Report 17454533 (Version 1)
Quarter: 2020Q1

REPORT INFORMATION
  Report Type: Spontaneous
  Country: US (occurrence: US)
  Receive Date: 20200225
  Receipt Date: 20200225
  Transmission Date: 20200409
  Serious: Yes (Other)
  Sender: FDA-Public Use
  Company Number: US-DRREDDYS-USA/USA/20/0119895

PATIENT
  Age: 30 Year
  Sex: Female
  Weight: 55.35 kg

DRUGS (1)
  1. BUPRENORPHINE AND NALOXONE SUBLINGUAL FILM 2 MG/0.5 MG AND 8MG/2MG [Suspect]
     Active Substance: BUPRENORPHINE\NALOXONE
     Indication: DRUG USE DISORDER
     Dosage: 2 MG / 0.5 MG
     Route: 048
     Dates: start: 20200210, end: 20200215

REACTIONS (7)
  - Malaise [Recovered/Resolved]
  - Drug ineffective [Recovered/Resolved]
  - Back pain [Recovered/Resolved]
  - Product quality issue [Unknown]
  - Nasopharyngitis [Recovered/Resolved]
  - Decreased appetite [Recovered/Resolved]
  - Anxiety [Recovered/Resolved]

NARRATIVE: CASE EVENT DATE: 20200214
